FAERS Safety Report 19283709 (Version 1)
Quarter: 2021Q2

REPORT INFORMATION
  Report Type: Spontaneous
  Country: FR (occurrence: FR)
  Receive Date: 20210520
  Receipt Date: 20210520
  Transmission Date: 20210717
  Serious: Yes (Life-Threatening, Other)
  Sender: FDA-Public Use
  Company Number: FR-CELLTRION INC.-2021FR006680

PATIENT

DRUGS (2)
  1. PERTUZUMAB. [Suspect]
     Active Substance: PERTUZUMAB
     Indication: HER2 POSITIVE BREAST CANCER
     Dosage: 3 WEEK SCHEDULE
     Route: 042
  2. HERZUMA [Suspect]
     Active Substance: TRASTUZUMAB-PKRB
     Indication: HER2 POSITIVE BREAST CANCER
     Dosage: 3 WEEK SCHEDULE
     Route: 042
     Dates: start: 201811

REACTIONS (9)
  - Hypersensitivity [Unknown]
  - Nausea [Unknown]
  - Left ventricular dysfunction [Unknown]
  - Febrile neutropenia [Unknown]
  - Fatigue [Unknown]
  - Eczema [Unknown]
  - Diarrhoea [Unknown]
  - Xerosis [Unknown]
  - Mucosal inflammation [Unknown]
